FAERS Safety Report 8054075-1 (Version None)
Quarter: 2012Q1

REPORT INFORMATION
  Report Type: 
  Country: None (occurrence: None)
  Receive Date: 20120118
  Receipt Date: 20120105
  Transmission Date: 20120608
  Serious: Yes (Life-Threatening, Hospitalization)
  Sender: FDA-Public Use
  Company Number: JP-MYLANLABS-2012S1000710

PATIENT
  Age: 84 Year
  Sex: Male

DRUGS (5)
  1. INDAPAMIDE [Suspect]
     Indication: HYPERTENSION
     Dosage: 1MG DAILY
     Route: 065
     Dates: start: 20070101, end: 20100101
  2. BENIDIPINE [Concomitant]
     Indication: HYPERTENSION
     Dosage: 4 MG/DAY
     Route: 065
  3. ROSUVASTATIN [Concomitant]
     Indication: HYPERCHOLESTEROLAEMIA
     Dosage: 2.5 MG/DAY
     Route: 065
  4. EPITHANATE [Concomitant]
     Indication: GASTROENTERITIS
     Dosage: 3 G/DAY
     Route: 065
  5. FAMOTIDINE [Concomitant]
     Indication: GASTROENTERITIS
     Dosage: 20 MG/DAY
     Route: 065

REACTIONS (6)
  - BUNDLE BRANCH BLOCK RIGHT [None]
  - VENTRICULAR FLUTTER [None]
  - HYPOKALAEMIA [None]
  - CARDIOPULMONARY FAILURE [None]
  - RHABDOMYOLYSIS [None]
  - ATRIOVENTRICULAR BLOCK [None]
